FAERS Safety Report 23595766 (Version 1)
Quarter: 2024Q1

REPORT INFORMATION
  Report Type: Spontaneous
  Country: US (occurrence: None)
  Receive Date: 20240304
  Receipt Date: 20240304
  Transmission Date: 20240410
  Serious: Yes (unspecified)
  Sender: FDA-Public Use
  Company Number: None

PATIENT
  Age: 34 Year
  Sex: Female
  Weight: 63 kg

DRUGS (2)
  1. EMGALITY [Suspect]
     Active Substance: GALCANEZUMAB-GNLM
     Indication: Migraine
     Route: 058
     Dates: start: 20240105, end: 20240304
  2. Birth Control [Concomitant]

REACTIONS (5)
  - Injection site pain [None]
  - Injection site swelling [None]
  - Injection site erythema [None]
  - Injection site pain [None]
  - Anaphylactic reaction [None]

NARRATIVE: CASE EVENT DATE: 20240304
